FAERS Safety Report 4862568-0 (Version None)
Quarter: 2005Q4

REPORT INFORMATION
  Report Type: 
  Country: None (occurrence: None)
  Receive Date: 20051221
  Receipt Date: 20051205
  Transmission Date: 20060501
  Serious: Yes (Death)
  Sender: FDA-Public Use
  Company Number: GB-GLAXOSMITHKLINE-B0404237A

PATIENT
  Sex: Male

DRUGS (5)
  1. SEROXAT [Suspect]
     Route: 065
     Dates: start: 19961001, end: 20010101
  2. THIORIDAZINE HCL [Concomitant]
     Dosage: 50MG AT NIGHT
     Route: 065
  3. ZIMOVANE [Concomitant]
     Dosage: 7.5MG AT NIGHT
     Route: 065
  4. TRAZODONE HCL [Concomitant]
     Route: 065
  5. CITALOPRAM HYDROBROMIDE [Concomitant]
     Dosage: 20MG PER DAY
     Route: 065

REACTIONS (10)
  - ADVERSE EVENT [None]
  - BASAL CELL CARCINOMA [None]
  - CEREBROVASCULAR ACCIDENT [None]
  - CONDITION AGGRAVATED [None]
  - DEATH [None]
  - DEPRESSION [None]
  - DYSKINESIA [None]
  - MEDICATION ERROR [None]
  - PARKINSON'S DISEASE [None]
  - TREATMENT NONCOMPLIANCE [None]
